FAERS Safety Report 7737446-X (Version None)
Quarter: 2011Q3

REPORT INFORMATION
  Report Type: 
  Country: None (occurrence: None)
  Receive Date: 20110908
  Receipt Date: 20110826
  Transmission Date: 20111222
  Serious: Yes (Hospitalization)
  Sender: FDA-Public Use
  Company Number: US-GLAXOSMITHKLINE-A0897052A

PATIENT
  Age: 42 Year
  Sex: Male
  Weight: 98.2 kg

DRUGS (2)
  1. INSULIN [Concomitant]
  2. AVANDIA [Suspect]
     Indication: TYPE 2 DIABETES MELLITUS
     Dosage: 8MG PER DAY
     Route: 048
     Dates: start: 20020616, end: 20030930

REACTIONS (2)
  - ISCHAEMIC STROKE [None]
  - CARDIOVASCULAR DISORDER [None]
